FAERS Safety Report 5250329-2 (Version None)
Quarter: 2007Q1

REPORT INFORMATION
  Report Type: 
  Country: None (occurrence: None)
  Receive Date: 20070228
  Receipt Date: 20060411
  Transmission Date: 20070707
  Serious: Yes (Other)
  Sender: FDA-Public Use
  Company Number: US-GLAXOSMITHKLINE-A0599360A

PATIENT
  Age: 23 Year
  Sex: Female
  Weight: 54.5 kg

DRUGS (3)
  1. LAMICTAL [Suspect]
     Indication: BIPOLAR DISORDER
     Dosage: 200MG UNKNOWN
     Route: 048
     Dates: start: 20041101, end: 20060301
  2. LITHIUM CARBONATE [Concomitant]
     Dates: start: 20040401
  3. CELEXA [Concomitant]
     Dates: start: 20041101

REACTIONS (1)
  - HEPATIC ENZYME INCREASED [None]
